FAERS Safety Report 22328619 (Version 1)
Quarter: 2023Q2

REPORT INFORMATION
  Report Type: Spontaneous
  Country: US (occurrence: US)
  Receive Date: 20230517
  Receipt Date: 20230517
  Transmission Date: 20230722
  Serious: No
  Sender: FDA-Public Use
  Company Number: US-RADIUS HEALTH INC.-2023US000022

PATIENT
  Age: 61 Year
  Sex: Female

DRUGS (2)
  1. TYMLOS [Suspect]
     Active Substance: ABALOPARATIDE
     Indication: Product used for unknown indication
     Dosage: 80 MCG, DAILY
     Route: 058
     Dates: start: 20221230
  2. TYMLOS [Suspect]
     Active Substance: ABALOPARATIDE
     Dosage: 3 CLICKS, 4 CLICKS TODAY
     Route: 058

REACTIONS (6)
  - Blood pressure increased [Unknown]
  - Pain in jaw [Unknown]
  - Headache [Unknown]
  - Tachycardia [Recovering/Resolving]
  - Palpitations [Recovering/Resolving]
  - Intentional product misuse [None]

NARRATIVE: CASE EVENT DATE: 20221230
